FAERS Safety Report 4653037-1 (Version None)
Quarter: 2005Q2

REPORT INFORMATION
  Report Type: 
  Country: None (occurrence: None)
  Receive Date: 20050502
  Receipt Date: 20050414
  Transmission Date: 20051028
  Serious: Yes (Hospitalization)
  Sender: FDA-Public Use
  Company Number: 20052279

PATIENT
  Sex: Male

DRUGS (3)
  1. LIORESAL [Suspect]
     Dosage: MCG, DAILY, INTRATHECAL
     Route: 037
  2. MIRALAX [Concomitant]
  3. MOBIC [Concomitant]

REACTIONS (8)
  - CATHETER RELATED COMPLICATION [None]
  - DEVICE FAILURE [None]
  - DRUG WITHDRAWAL SYNDROME [None]
  - HAEMATEMESIS [None]
  - LETHARGY [None]
  - MELAENA [None]
  - OVERDOSE [None]
  - PYREXIA [None]
